FAERS Safety Report 6848785-9 (Version None)
Quarter: 2010Q3

REPORT INFORMATION
  Report Type: 
  Country: None (occurrence: None)
  Receive Date: 20100716
  Receipt Date: 20070910
  Transmission Date: 20110219
  Serious: No
  Sender: FDA-Public Use
  Company Number: US-PFIZER INC-2007076021

PATIENT
  Sex: Female
  Weight: 77.272 kg

DRUGS (3)
  1. CHANTIX [Suspect]
     Indication: SMOKING CESSATION THERAPY
     Route: 048
     Dates: start: 20070807
  2. TRAZODONE HYDROCHLORIDE [Concomitant]
     Indication: DEPRESSION
  3. FLUOXETINE HCL [Concomitant]
     Indication: DEPRESSION

REACTIONS (2)
  - ABNORMAL DREAMS [None]
  - NIGHTMARE [None]
